FAERS Safety Report 16121278 (Version 1)
Quarter: 2019Q1

REPORT INFORMATION
  Report Type: Spontaneous
  Country: US (occurrence: US)
  Receive Date: 20190221
  Receipt Date: 20190221
  Transmission Date: 20190418
  Serious: Yes (Death, Hospitalization)
  Sender: FDA-Public Use
  Company Number: None

PATIENT
  Age: 35 Year
  Sex: Male
  Weight: 56 kg

DRUGS (2)
  1. TAXOL [Suspect]
     Active Substance: PACLITAXEL
     Dates: end: 20190209
  2. IFOSFAMIDE. [Suspect]
     Active Substance: IFOSFAMIDE
     Dates: end: 20190211

REACTIONS (5)
  - Respiratory failure [None]
  - Acute respiratory failure [None]
  - Cerebral infarction [None]
  - Brain herniation [None]
  - Brain oedema [None]

NARRATIVE: CASE EVENT DATE: 20190214
